FAERS Safety Report 8958356 (Version 1)
Quarter: 2012Q4

REPORT INFORMATION
  Report Type: 
  Country: US (occurrence: US)
  Receive Date: 20121210
  Receipt Date: 20121210
  Transmission Date: 20130627
  Serious: Yes (Hospitalization)
  Sender: FDA-Public Use
  Company Number: US-GLAXOSMITHKLINE-A0857205A

PATIENT
  Age: 64 Year
  Sex: Female

DRUGS (4)
  1. AVANDIA [Suspect]
     Indication: DIABETES MELLITUS
     Route: 048
  2. GLUCOPHAGE [Concomitant]
  3. CAPTOPRIL [Concomitant]
  4. HYDRALAZINE [Concomitant]

REACTIONS (7)
  - Asthenia [Not Recovered/Not Resolved]
  - Fatigue [Unknown]
  - Diarrhoea [Unknown]
  - Frequent bowel movements [Unknown]
  - Dyspnoea [Unknown]
  - Pain in extremity [Unknown]
  - Disturbance in attention [Unknown]
